FAERS Safety Report 15578966 (Version 18)
Quarter: 2019Q2

REPORT INFORMATION
  Report Type: Report from Study
  Country: CA (occurrence: CA)
  Receive Date: 20181102
  Receipt Date: 20190426
  Transmission Date: 20190711
  Serious: Yes (Death, Life-Threatening, Hospitalization)
  Sender: FDA-Public Use
  Company Number: CA-REGENERON PHARMACEUTICALS, INC.-2018-42708

PATIENT

DRUGS (37)
  1. PANTOLOC [PANTOPRAZOLE] [Concomitant]
     Active Substance: PANTOPRAZOLE SODIUM
     Indication: PROPHYLAXIS
     Dosage: 40 MG, QD
     Route: 048
     Dates: start: 2018
  2. MACROBID                           /00984601/ [Concomitant]
     Indication: PROPHYLAXIS
     Dosage: 100 MG, QD
     Route: 048
     Dates: start: 20181011, end: 20181015
  3. CESAMET [Concomitant]
     Active Substance: NABILONE
     Indication: DRUG THERAPY
     Dosage: 1 MG, QD
     Route: 048
     Dates: start: 20181011, end: 20181012
  4. ISATUXIMAB [Suspect]
     Active Substance: ISATUXIMAB
     Indication: PLASMA CELL MYELOMA
     Dosage: 10 MG/KG, QW
     Route: 042
     Dates: start: 20181015, end: 20181015
  5. TYLENOL [Concomitant]
     Active Substance: ACETAMINOPHEN
     Dosage: 975 MG, QD
     Route: 048
     Dates: start: 2018
  6. VALTREX [Concomitant]
     Active Substance: VALACYCLOVIR HYDROCHLORIDE
     Indication: PROPHYLAXIS
     Dosage: 500 MG, QD
     Route: 048
     Dates: start: 2014
  7. BENADRYL [ACRIVASTINE] [Concomitant]
     Active Substance: ACRIVASTINE
     Indication: PROPHYLAXIS
     Dosage: 50 MG, QD
     Route: 042
     Dates: start: 20181015, end: 20181015
  8. HYDROMORPH CONTIN [Concomitant]
     Active Substance: HYDROMORPHONE
     Indication: DRUG THERAPY
     Dosage: 9 MG, QD
     Route: 048
     Dates: start: 20181011, end: 20181015
  9. SINGULAIR [Concomitant]
     Active Substance: MONTELUKAST SODIUM
     Indication: PRODUCT USED FOR UNKNOWN INDICATION
     Dosage: 10 MG, QD
     Route: 048
     Dates: start: 20181015, end: 20181015
  10. RED BLOOD CELLS, CONCENTRATED [Concomitant]
     Active Substance: HUMAN RED BLOOD CELL
     Dosage: 629 ML
     Route: 042
     Dates: start: 20181018, end: 20181018
  11. SOLU-MEDROL [Concomitant]
     Active Substance: METHYLPREDNISOLONE SODIUM SUCCINATE
     Indication: PROPHYLAXIS
     Dosage: 100 MG, QD
     Route: 042
     Dates: start: 20181015, end: 20181015
  12. CARBOCAL D [Concomitant]
     Active Substance: CALCIUM\VITAMIN D
     Dosage: 1 UNK
     Route: 048
     Dates: start: 20181015, end: 20181015
  13. HYDROMORPHONE [Concomitant]
     Active Substance: HYDROMORPHONE
     Indication: PRODUCT USED FOR UNKNOWN INDICATION
     Dosage: 12 MG, QD
     Route: 048
     Dates: start: 2018, end: 20181011
  14. HYDROMORPHONE [Concomitant]
     Active Substance: HYDROMORPHONE
     Dosage: 9 UNK, QD
     Route: 048
     Dates: start: 20181011, end: 20181015
  15. SODIUM PHOSPHATES [Concomitant]
     Active Substance: SODIUM PHOSPHATE, DIBASIC, ANHYDROUS\SODIUM PHOSPHATE, DIBASIC, HEPTAHYDRATE\SODIUM PHOSPHATE, MONOBASIC, MONOHYDRATE
     Indication: DRUG THERAPY
     Dosage: 130 ML, QD
     Route: 054
     Dates: start: 20181011, end: 20181011
  16. SENOKOT [Concomitant]
     Active Substance: SENNOSIDES
     Indication: PRODUCT USED FOR UNKNOWN INDICATION
     Dosage: 17.2 MG, QD
     Route: 048
     Dates: start: 20181011, end: 20181012
  17. LAX-A-DAY [Concomitant]
     Indication: PRODUCT USED FOR UNKNOWN INDICATION
     Dosage: UNK
     Dates: start: 20181011, end: 20181015
  18. OXYGEN. [Concomitant]
     Active Substance: OXYGEN
     Indication: PRODUCT USED FOR UNKNOWN INDICATION
     Dosage: UNK UNK, UNK
     Dates: start: 20181015
  19. HALDOL [Concomitant]
     Active Substance: HALOPERIDOL
     Indication: PRODUCT USED FOR UNKNOWN INDICATION
     Dosage: 4.5 MG, QD
     Route: 058
     Dates: start: 20181010, end: 20181010
  20. ISATUXIMAB [Suspect]
     Active Substance: ISATUXIMAB
     Dosage: 10 MG/KG, QW
     Route: 042
     Dates: start: 20181015, end: 20181015
  21. ZANTAC [Concomitant]
     Active Substance: RANITIDINE HYDROCHLORIDE
     Indication: PROPHYLAXIS
     Dosage: 50 MG, QD
     Route: 042
     Dates: start: 20181015, end: 20181015
  22. DILAUDID [Concomitant]
     Active Substance: HYDROMORPHONE HYDROCHLORIDE
     Indication: PRODUCT USED FOR UNKNOWN INDICATION
     Dosage: 2 MG, QD
     Route: 048
     Dates: start: 20180929
  23. LYRICA [Concomitant]
     Active Substance: PREGABALIN
     Indication: PRODUCT USED FOR UNKNOWN INDICATION
     Dosage: 50 MG, QD
     Route: 048
     Dates: start: 201809
  24. CESAMET [Concomitant]
     Active Substance: NABILONE
     Dosage: 2 MG, QD
     Route: 048
     Dates: start: 20181014, end: 20181015
  25. SOLU-CORTEF [Concomitant]
     Active Substance: HYDROCORTISONE SODIUM SUCCINATE
     Indication: PRODUCT USED FOR UNKNOWN INDICATION
     Dosage: 100 MG, QD
     Route: 042
     Dates: start: 20181015, end: 20181015
  26. RED BLOOD CELLS, CONCENTRATED [Concomitant]
     Active Substance: HUMAN RED BLOOD CELL
     Dosage: 189 ML, QD
     Route: 042
     Dates: start: 20181022, end: 20181122
  27. COLACE [Concomitant]
     Active Substance: DOCUSATE SODIUM
     Indication: DRUG THERAPY
     Dosage: 100 MG, QD
     Route: 048
     Dates: start: 20181014, end: 20181015
  28. NEUPOGEN [Concomitant]
     Active Substance: FILGRASTIM
     Indication: PRODUCT USED FOR UNKNOWN INDICATION
     Dosage: 480 UG, QD
     Route: 058
     Dates: start: 20181011, end: 20181015
  29. RED BLOOD CELLS, CONCENTRATED [Concomitant]
     Active Substance: HUMAN RED BLOOD CELL
     Indication: DRUG THERAPY
     Dosage: 1 U, QD
     Route: 042
     Dates: start: 20181010, end: 20181010
  30. RED BLOOD CELLS, CONCENTRATED [Concomitant]
     Active Substance: HUMAN RED BLOOD CELL
     Dosage: 2 U, QD
     Dates: start: 20181011, end: 20181011
  31. HALDOL [Concomitant]
     Active Substance: HALOPERIDOL
     Dosage: 6 MG, QD
     Route: 058
     Dates: start: 20181011, end: 20181012
  32. CEMIPLIMAB [Suspect]
     Active Substance: CEMIPLIMAB
     Indication: PLASMA CELL MYELOMA
     Dosage: 250 MG, QOW
     Route: 042
     Dates: start: 20181015, end: 20181015
  33. TYLENOL [Concomitant]
     Active Substance: ACETAMINOPHEN
     Indication: PROPHYLAXIS
     Dosage: 650 MG, QD
     Route: 048
     Dates: start: 20181015, end: 20181015
  34. LEVOTHYROXINE. [Concomitant]
     Active Substance: LEVOTHYROXINE
     Indication: PRODUCT USED FOR UNKNOWN INDICATION
     Dosage: 75 UG, QD
     Route: 048
     Dates: start: 2006
  35. MORPHINE [Concomitant]
     Active Substance: MORPHINE
     Indication: PRODUCT USED FOR UNKNOWN INDICATION
     Dosage: 10 MG, QD
     Route: 048
     Dates: start: 20180927
  36. CARBOCAL D [Concomitant]
     Active Substance: CALCIUM\VITAMIN D
     Indication: PROPHYLAXIS
     Dosage: 1 DF, QD
     Route: 048
     Dates: start: 2018
  37. ZOFRAN [Concomitant]
     Active Substance: ONDANSETRON HYDROCHLORIDE
     Indication: PRODUCT USED FOR UNKNOWN INDICATION
     Route: 048
     Dates: start: 20181008, end: 20181018

REACTIONS (5)
  - Epistaxis [Recovered/Resolved]
  - Pneumonia staphylococcal [Not Recovered/Not Resolved]
  - Infusion related reaction [Recovered/Resolved]
  - Septic shock [Recovered/Resolved]
  - Thrombocytopenia [Recovered/Resolved]

NARRATIVE: CASE EVENT DATE: 20181015
